FAERS Safety Report 4335135-5 (Version None)
Quarter: 2004Q1

REPORT INFORMATION
  Report Type: 
  Country: None (occurrence: None)
  Receive Date: 20040329
  Receipt Date: 20040123
  Transmission Date: 20041129
  Serious: No
  Sender: FDA-Public Use
  Company Number: 04P-163-0248420-00

PATIENT
  Age: 62 Year
  Sex: Female

DRUGS (17)
  1. HUMIRA [Suspect]
     Indication: RHEUMATOID ARTHRITIS
     Dosage: 40 MG, 1 IN 2 WK, SUBCUTANEOUS
     Route: 058
     Dates: start: 20031001
  2. LEUCOVORIN CALCIUM [Concomitant]
  3. METHOTREXATE SODIUM [Concomitant]
  4. AZATHIOPRINE [Concomitant]
  5. ATENOLOL [Concomitant]
  6. RISEDRONATE SODIUM [Concomitant]
  7. MECLIZINE [Concomitant]
  8. ASPIRIN [Concomitant]
  9. METHYLCELLULOSE [Concomitant]
  10. PYRIDOXINE HYDROCHLORIDE [Concomitant]
  11. CENTRUM [Concomitant]
  12. GINKO [Concomitant]
  13. TOCOPHEROL CONCENTRATE CAP [Concomitant]
  14. CALCIUM [Concomitant]
  15. MAGNESIUNM [Concomitant]
  16. OSTEO BI-FLEX [Concomitant]
  17. ACETAMINOPHEN [Concomitant]

REACTIONS (7)
  - BODY TEMPERATURE DECREASED [None]
  - EYE SWELLING [None]
  - HEADACHE [None]
  - JOINT CREPITATION [None]
  - MUSCLE TWITCHING [None]
  - PAIN IN JAW [None]
  - SWELLING FACE [None]
